FAERS Safety Report 10079935 (Version 2)
Quarter: 2014Q2

REPORT INFORMATION
  Report Type: Spontaneous
  Country: US (occurrence: US)
  Receive Date: 20140415
  Receipt Date: 20140415
  Transmission Date: 20141212
  Serious: Yes (Hospitalization, Other)
  Sender: FDA-Public Use
  Company Number: US-DYAX CORP.-2013DX000025

PATIENT
  Age: 18 Year
  Sex: Female
  Weight: 89.89 kg

DRUGS (6)
  1. KALBITOR [Suspect]
     Indication: HEREDITARY ANGIOEDEMA
     Route: 058
     Dates: start: 20130130, end: 20130130
  2. KALBITOR [Suspect]
     Route: 058
     Dates: start: 201401, end: 201401
  3. KALBITOR [Suspect]
     Route: 058
     Dates: end: 201401
  4. ELLEN [Concomitant]
     Indication: HEREDITARY ANGIOEDEMA
     Route: 048
  5. ELLEN [Concomitant]
     Indication: HORMONE THERAPY
  6. VITAMIN D [Concomitant]
     Indication: VITAMIN D DEFICIENCY
     Route: 048

REACTIONS (5)
  - Anaphylactic reaction [Recovered/Resolved]
  - Injection site reaction [Recovered/Resolved]
  - Injection site erythema [Recovered/Resolved]
  - Injection site pain [Recovered/Resolved]
  - Headache [Recovered/Resolved]
